FAERS Safety Report 19970033 (Version 2)
Quarter: 2021Q4

REPORT INFORMATION
  Report Type: Report from Study
  Country: US (occurrence: US)
  Receive Date: 20211019
  Receipt Date: 20211109
  Transmission Date: 20220303
  Serious: Yes (Hospitalization)
  Sender: FDA-Public Use
  Company Number: US-BAYER-2021A219033

PATIENT
  Age: 66 Year
  Sex: Female

DRUGS (6)
  1. ADEMPAS [Suspect]
     Active Substance: RIOCIGUAT
     Indication: Pulmonary arterial hypertension
     Dosage: UNK
  2. ADEMPAS [Suspect]
     Active Substance: RIOCIGUAT
     Indication: Pulmonary arterial hypertension
     Dosage: 2.5 MG, TID
     Route: 048
     Dates: start: 20180116
  3. ADEMPAS [Suspect]
     Active Substance: RIOCIGUAT
     Indication: Pulmonary arterial hypertension
     Dosage: 2.5 MG, TID
     Route: 048
     Dates: start: 20210130
  4. OMEPRAZOLE [Suspect]
     Active Substance: OMEPRAZOLE
     Dosage: UNK
     Dates: end: 2021
  5. REMODULIN [Concomitant]
     Active Substance: TREPROSTINIL
     Dosage: UNK
  6. PEPCID AC [Concomitant]
     Active Substance: FAMOTIDINE
     Dosage: UNK
     Dates: start: 2021

REACTIONS (8)
  - Anaemia [None]
  - Dyspnoea [None]
  - Blood iron decreased [None]
  - Anaemia [None]
  - Influenza like illness [None]
  - Back pain [None]
  - Muscle spasms [None]
  - Decreased appetite [None]

NARRATIVE: CASE EVENT DATE: 20210101
